FAERS Safety Report 15327890 (Version 1)
Quarter: 2018Q3

REPORT INFORMATION
  Report Type: Spontaneous
  Country: US (occurrence: US)
  Receive Date: 20180828
  Receipt Date: 20180828
  Transmission Date: 20181010
  Serious: No
  Sender: FDA-Public Use
  Company Number: US-ROCHE-2147310

PATIENT
  Age: 18 Year
  Sex: Female

DRUGS (4)
  1. CERITINIB [Suspect]
     Active Substance: CERITINIB
     Route: 065
  2. ALECTINIB. [Suspect]
     Active Substance: ALECTINIB
     Indication: SARCOMA METASTATIC
     Route: 065
  3. CERITINIB [Suspect]
     Active Substance: CERITINIB
     Indication: SARCOMA METASTATIC
     Route: 065
  4. CRIZOTINIB [Suspect]
     Active Substance: CRIZOTINIB
     Indication: SARCOMA METASTATIC
     Route: 065

REACTIONS (1)
  - Drug resistance [Unknown]
